FAERS Safety Report 13349846 (Version 1)
Quarter: 2017Q1

REPORT INFORMATION
  Report Type: Spontaneous
  Country: US (occurrence: US)
  Receive Date: 20170318
  Receipt Date: 20170318
  Transmission Date: 20170429
  Serious: Yes (Disabling)
  Sender: FDA-Public Use
  Company Number: None

PATIENT
  Age: 60 Year
  Sex: Female
  Weight: 108 kg

DRUGS (4)
  1. CELEXA [Concomitant]
     Active Substance: CITALOPRAM HYDROBROMIDE
  2. AMITRYPTALINE [Concomitant]
     Active Substance: AMITRIPTYLINE
  3. CONTRAVE [Suspect]
     Active Substance: BUPROPION HYDROCHLORIDE\NALTREXONE HYDROCHLORIDE
     Indication: WEIGHT DECREASED
     Dosage: QUANTITY:120 TABLET(S);OTHER FREQUENCY:2 AM 2 PM;?
     Route: 048
     Dates: start: 20170220, end: 20170318
  4. NUERONTIN [Concomitant]

REACTIONS (7)
  - Fine motor skill dysfunction [None]
  - Dysphagia [None]
  - Headache [None]
  - Dry mouth [None]
  - Muscle twitching [None]
  - Tic [None]
  - Dry throat [None]

NARRATIVE: CASE EVENT DATE: 20170318
